FAERS Safety Report 6328795-0 (Version None)
Quarter: 2009Q3

REPORT INFORMATION
  Report Type: 
  Country: None (occurrence: None)
  Receive Date: 20090826
  Receipt Date: 20090819
  Transmission Date: 20100115
  Serious: Yes (Hospitalization)
  Sender: FDA-Public Use
  Company Number: JP-BRISTOL-MYERS SQUIBB COMPANY-14751846

PATIENT
  Age: 61 Year
  Sex: Male
  Weight: 68 kg

DRUGS (6)
  1. ERBITUX [Suspect]
     Indication: COLON CANCER
     Dosage: 07MAY09-07MAY09:752MG/M2 14MAY09-14MAY09:470MG/M2 21MAY09-11JUN09:467.5 MG/M2
     Route: 042
     Dates: start: 20090507, end: 20090611
  2. CAMPTOSAR [Suspect]
     Indication: COLON CANCER
     Dosage: RECENT INF:21MAY09
     Route: 042
     Dates: start: 20090507, end: 20090521
  3. CHLOR-TRIMETON [Concomitant]
     Indication: PREMEDICATION
     Dosage: IV INF 1.4286MG
     Route: 042
     Dates: start: 20090507, end: 20090611
  4. DECADRON [Concomitant]
     Indication: PREMEDICATION
     Dosage: 1.1429MG IV INF TABS,4MG(2MG,2IN1D)ORAL,14MAY09
     Route: 042
     Dates: start: 20090507, end: 20090611
  5. KYTRIL [Concomitant]
     Indication: ANTIEMETIC SUPPORTIVE CARE
     Route: 065
     Dates: start: 20090507, end: 20090611
  6. NASEA [Concomitant]
     Dosage: NASEA-OD TABLET
     Route: 048
     Dates: start: 20090514

REACTIONS (1)
  - HERPES ZOSTER [None]
